FAERS Safety Report 4607217-1 (Version None)
Quarter: 2005Q1

REPORT INFORMATION
  Report Type: 
  Country: None (occurrence: None)
  Receive Date: 20050309
  Receipt Date: 20050221
  Transmission Date: 20050727
  Serious: Yes (Other)
  Sender: FDA-Public Use
  Company Number: US_0501109709

PATIENT
  Sex: Female

DRUGS (2)
  1. EVISTA [Suspect]
  2. UNSPECIFIED BISPHOSPHONATE [Concomitant]

REACTIONS (1)
  - BREAST CANCER [None]
